FAERS Safety Report 8582104-5 (Version None)
Quarter: 2012Q3

REPORT INFORMATION
  Report Type: 
  Country: None (occurrence: None)
  Receive Date: 20120809
  Receipt Date: 20120731
  Transmission Date: 20120928
  Serious: Yes (Hospitalization, Other)
  Sender: FDA-Public Use
  Company Number: JP-ELI_LILLY_AND_COMPANY-JP201207004831

PATIENT
  Age: 36 Year
  Sex: Male

DRUGS (2)
  1. BYETTA [Suspect]
     Dosage: 10 UG, BID
     Route: 058
  2. AMARYL [Concomitant]
     Dosage: 0.5 MG, QD
     Route: 048

REACTIONS (6)
  - ABDOMINAL DISTENSION [None]
  - HOSPITALISATION [None]
  - CHEILITIS [None]
  - BLOOD GLUCOSE INCREASED [None]
  - TINEA INFECTION [None]
  - DRUG INEFFECTIVE [None]
